FAERS Safety Report 16099105 (Version 2)
Quarter: 2019Q2

REPORT INFORMATION
  Report Type: Spontaneous
  Country: US (occurrence: US)
  Receive Date: 20190321
  Receipt Date: 20190405
  Transmission Date: 20190711
  Serious: Yes (Hospitalization)
  Sender: FDA-Public Use
  Company Number: US-JNJFOC-20190308281

PATIENT
  Age: 45 Year
  Sex: Male
  Weight: 78.93 kg

DRUGS (1)
  1. INVEGA TRINZA [Suspect]
     Active Substance: PALIPERIDONE PALMITATE
     Indication: SCHIZOPHRENIA
     Route: 030
     Dates: start: 20181011, end: 20190227

REACTIONS (7)
  - Acute kidney injury [Recovering/Resolving]
  - Anaemia [Unknown]
  - Therapeutic response decreased [Unknown]
  - Pulmonary embolism [Recovering/Resolving]
  - Neuroleptic malignant syndrome [Unknown]
  - Rhabdomyolysis [Recovering/Resolving]
  - Schizophrenia [Recovering/Resolving]
